FAERS Safety Report 12660520 (Version 1)
Quarter: 2016Q3

REPORT INFORMATION
  Report Type: Other
  Country: None (occurrence: US)
  Receive Date: 20160817
  Receipt Date: 20160817
  Transmission Date: 20161109
  Serious: Yes (Other)
  Sender: FDA-Public Use
  Company Number: US-GUTHY-RENKER LLC-1056434

PATIENT
  Age: 66 Year
  Sex: Female

DRUGS (2)
  1. LORATADINE. [Concomitant]
     Active Substance: LORATADINE
  2. IT COSMETICS BYE BYE FOUNDATION W/SPF 50+ [Suspect]
     Active Substance: TITANIUM DIOXIDE\ZINC OXIDE
     Indication: PROPHYLAXIS AGAINST SOLAR RADIATION
     Route: 061
     Dates: start: 20160809

REACTIONS (3)
  - Eye swelling [Recovering/Resolving]
  - Application site swelling [None]
  - Application site pruritus [None]

NARRATIVE: CASE EVENT DATE: 20160809
